FAERS Safety Report 9368017 (Version 1)
Quarter: 2013Q2

REPORT INFORMATION
  Report Type: Spontaneous
  Country: US (occurrence: US)
  Receive Date: 20130625
  Receipt Date: 20130625
  Transmission Date: 20140414
  Serious: Yes (Other)
  Sender: FDA-Public Use
  Company Number: US-ASTELLAS-2013US002530

PATIENT
  Age: 89 Year
  Sex: Female
  Weight: 61 kg

DRUGS (1)
  1. VESICARE [Suspect]
     Indication: HYPERTONIC BLADDER
     Dosage: 5 MG, UID/QD
     Route: 048
     Dates: start: 201302, end: 20130226

REACTIONS (17)
  - Dyspnoea [Unknown]
  - Hypersensitivity [Unknown]
  - Swelling face [Unknown]
  - Treatment noncompliance [Unknown]
  - Epistaxis [Unknown]
  - Insomnia [Not Recovered/Not Resolved]
  - Feeling hot [Unknown]
  - Pain [Not Recovered/Not Resolved]
  - Burning sensation [Unknown]
  - Temperature intolerance [Not Recovered/Not Resolved]
  - Neck pain [Unknown]
  - Pain in extremity [Unknown]
  - Dry mouth [Unknown]
  - Constipation [Unknown]
  - Pruritus [Unknown]
  - Abdominal pain upper [Unknown]
  - Headache [Unknown]
